FAERS Safety Report 5506631-X (Version None)
Quarter: 2007Q4

REPORT INFORMATION
  Report Type: 
  Country: None (occurrence: None)
  Receive Date: 20071105
  Receipt Date: 20071023
  Transmission Date: 20080405
  Serious: Yes (Other)
  Sender: FDA-Public Use
  Company Number: FR-TYCO HEALTHCARE/MALLINCKRODT-T200701312

PATIENT

DRUGS (2)
  1. TRAMADOL HCL [Suspect]
     Indication: ANAESTHETIC PREMEDICATION
     Dosage: 50 MG, SINGLE
  2. BUPIVACAINE [Suspect]
     Indication: ANAESTHETIC PREMEDICATION
     Dosage: 15 MG, SINGLE

REACTIONS (1)
  - PARAPLEGIA [None]
